FAERS Safety Report 11529349 (Version 3)
Quarter: 2015Q4

REPORT INFORMATION
  Report Type: Report from Study
  Country: US (occurrence: US)
  Receive Date: 20150921
  Receipt Date: 20151028
  Transmission Date: 20160304
  Serious: Yes (Hospitalization, Other)
  Sender: FDA-Public Use
  Company Number: US-GILEAD-2015-0169745

PATIENT
  Age: 68 Year
  Weight: 102.95 kg

DRUGS (21)
  1. ADCIRCA [Concomitant]
     Active Substance: TADALAFIL
  2. ACTIGALL [Concomitant]
     Active Substance: URSODIOL
  3. ASPIRIN                            /00002701/ [Concomitant]
     Active Substance: ASPIRIN
  4. UROCIT-K [Concomitant]
     Active Substance: POTASSIUM CITRATE
  5. ZYLOPRIM [Concomitant]
     Active Substance: ALLOPURINOL
  6. AMBRISENTAN [Suspect]
     Active Substance: AMBRISENTAN
     Indication: SCLERODERMA
  7. CALCIUM CITRATE + D [Concomitant]
  8. COLCHICINE. [Concomitant]
     Active Substance: COLCHICINE
  9. IRON [Concomitant]
     Active Substance: IRON
  10. AMBRISENTAN [Suspect]
     Active Substance: AMBRISENTAN
     Indication: PULMONARY HYPERTENSION
  11. MELOXICAM. [Concomitant]
     Active Substance: MELOXICAM
  12. TOPROL XL [Concomitant]
     Active Substance: METOPROLOL SUCCINATE
  13. VITAMIN B12 [Concomitant]
     Active Substance: CYANOCOBALAMIN
  14. MINIPRESS [Concomitant]
     Active Substance: PRAZOSIN HYDROCHLORIDE
  15. AMBRISENTAN [Suspect]
     Active Substance: AMBRISENTAN
     Indication: COR PULMONALE CHRONIC
     Dosage: 5 MG, QD
     Route: 065
     Dates: start: 20150729, end: 20150909
  16. LASIX [Concomitant]
     Active Substance: FUROSEMIDE
  17. NIFEDICAL XL [Concomitant]
     Active Substance: NIFEDIPINE
  18. MULTIVITAMIN                       /00097801/ [Concomitant]
     Active Substance: VITAMINS
  19. ZOCOR [Concomitant]
     Active Substance: SIMVASTATIN
  20. LANOXIN [Concomitant]
     Active Substance: DIGOXIN
  21. HYDROCODONE [Concomitant]
     Active Substance: HYDROCODONE

REACTIONS (4)
  - Pleural effusion [Unknown]
  - Oedema [Recovered/Resolved]
  - Oedema peripheral [Recovered/Resolved]
  - Dyspnoea [Recovered/Resolved]

NARRATIVE: CASE EVENT DATE: 2015
